FAERS Safety Report 7473656-7 (Version None)
Quarter: 2011Q1

REPORT INFORMATION
  Report Type: 
  Country: None (occurrence: None)
  Receive Date: 20110302
  Receipt Date: 20100802
  Transmission Date: 20110831
  Serious: Yes (Death, Other)
  Sender: FDA-Public Use
  Company Number: 163-21880-10070601

PATIENT
  Age: 50 Year
  Sex: Male

DRUGS (15)
  1. MAGNESIUM OXIDE (MAGNESIUM OXIDE) [Concomitant]
  2. REVLIMID [Suspect]
     Indication: MULTIPLE MYELOMA
     Dosage: 10 MG, 1 IN 1 D, PO; 2.5 MG, 1 IN 2 D, PO
     Route: 048
     Dates: start: 20091201, end: 20100506
  3. REVLIMID [Suspect]
     Indication: MULTIPLE MYELOMA
     Dosage: 10 MG, 1 IN 1 D, PO; 2.5 MG, 1 IN 2 D, PO
     Route: 048
     Dates: start: 20090619, end: 20090101
  4. SYNTHROID [Concomitant]
  5. KLOR-CON [Concomitant]
  6. SPIRONOLACTONE [Concomitant]
  7. OXYCODONE HCL [Concomitant]
  8. CIPROFLOXACIN [Concomitant]
  9. TOPROL-XL [Concomitant]
  10. STOOL SOFTENER (DOCUSATE SODIUM) [Concomitant]
  11. LISINOPRIL [Concomitant]
  12. VALTREX [Concomitant]
  13. GLIPIZIDE XL (GLIPIZIDE) [Concomitant]
  14. FOLIC ACID [Concomitant]
  15. DESFERAL [Concomitant]

REACTIONS (3)
  - HEPATIC CIRRHOSIS [None]
  - DISEASE PROGRESSION [None]
  - NEPHROLITHIASIS [None]
